FAERS Safety Report 8168026 (Version 4)
Quarter: 2012Q4

REPORT INFORMATION
  Report Type: 
  Country: US (occurrence: US)
  Receive Date: 20111004
  Receipt Date: 20120830
  Transmission Date: 20130627
  Serious: Yes (Hospitalization)
  Sender: FDA-Public Use
  Company Number: US-ACTELION-A-NJ2011-54610

PATIENT
  Age: 31 Year
  Sex: Female

DRUGS (5)
  1. TRACLEER [Suspect]
     Indication: PULMONARY ARTERIAL HYPERTENSION
     Dosage: UNK
     Route: 048
     Dates: start: 20080321
  2. VELETRI [Suspect]
     Indication: PULMONARY ARTERIAL HYPERTENSION
     Dosage: 33 ng/kg, per min
     Route: 041
     Dates: start: 20101019
  3. REVATIO [Concomitant]
  4. COUMADIN [Concomitant]
  5. OXYGEN [Concomitant]

REACTIONS (4)
  - Device malfunction [Recovered/Resolved]
  - Medical device complication [Recovering/Resolving]
  - Nausea [Unknown]
  - Vomiting [Unknown]
